FAERS Safety Report 25278820 (Version 1)
Quarter: 2025Q2

REPORT INFORMATION
  Report Type: Spontaneous
  Country: CN (occurrence: CN)
  Receive Date: 20250507
  Receipt Date: 20250507
  Transmission Date: 20250717
  Serious: Yes (Other)
  Sender: ELI LILLY AND COMPANY
  Company Number: CN-ELI_LILLY_AND_COMPANY-CN202504023803

PATIENT
  Age: 58 Year
  Sex: Male
  Weight: 70 kg

DRUGS (1)
  1. PEMETREXED [Suspect]
     Active Substance: PEMETREXED
     Indication: Lung adenocarcinoma
     Dosage: 0.7 G, DAILY
     Route: 041
     Dates: start: 20250219, end: 20250219

REACTIONS (7)
  - Drug-induced liver injury [Recovering/Resolving]
  - Myelosuppression [Recovering/Resolving]
  - Gastrointestinal disorder [Recovering/Resolving]
  - Mental disorder [Recovering/Resolving]
  - Asthenia [Recovering/Resolving]
  - Pyrexia [Recovering/Resolving]
  - Nausea [Recovering/Resolving]

NARRATIVE: CASE EVENT DATE: 20250221
